FAERS Safety Report 18789214 (Version 2)
Quarter: 2021Q1

REPORT INFORMATION
  Report Type: Spontaneous
  Country: US (occurrence: US)
  Receive Date: 20210126
  Receipt Date: 20210205
  Transmission Date: 20210419
  Serious: No
  Sender: FDA-Public Use
  Company Number: US-BAYER-2021-037870

PATIENT
  Age: 36 Year
  Sex: Female
  Weight: 77.1 kg

DRUGS (2)
  1. GADAVIST [Suspect]
     Active Substance: GADOBUTROL
     Indication: MAGNETIC RESONANCE IMAGING HEART
     Dosage: 15.2 ML, ONCE
     Route: 042
     Dates: start: 20210120, end: 20210120
  2. GADAVIST [Suspect]
     Active Substance: GADOBUTROL
     Indication: PERICARDIAL DISEASE

REACTIONS (1)
  - Rash [None]

NARRATIVE: CASE EVENT DATE: 20210121
